FAERS Safety Report 23673744 (Version 1)
Quarter: 2024Q1

REPORT INFORMATION
  Report Type: Spontaneous
  Country: AT (occurrence: AT)
  Receive Date: 20240326
  Receipt Date: 20240326
  Transmission Date: 20240410
  Serious: Yes (Hospitalization)
  Sender: FDA-Public Use
  Company Number: AT-ROCHE-2951677

PATIENT
  Age: 66 Year
  Sex: Female
  Weight: 68 kg

DRUGS (24)
  1. TRASTUZUMAB DERUXTECAN [Suspect]
     Active Substance: TRASTUZUMAB DERUXTECAN
     Indication: HER2 positive breast cancer
     Dosage: 5.4 MG/KG, ONCE EVERY 3 WK/ MOST RECENT DOSE 29/JUL/2021
     Route: 042
     Dates: start: 20210507
  2. TRASTUZUMAB [Suspect]
     Active Substance: TRASTUZUMAB
     Indication: HER2 positive breast cancer
     Dosage: 6 MG/KG, ONCE EVERY 3 WK
     Route: 042
     Dates: start: 20160823, end: 20190513
  3. XGEVA [Suspect]
     Active Substance: DENOSUMAB
     Indication: Product used for unknown indication
     Dosage: UNK
     Route: 065
  4. PERTUZUMAB [Suspect]
     Active Substance: PERTUZUMAB
     Indication: HER2 positive breast cancer
     Dosage: 420 MG, ONCE EVERY 3 WK
     Route: 042
     Dates: start: 20160823, end: 20190513
  5. KADCYLA [Suspect]
     Active Substance: ADO-TRASTUZUMAB EMTANSINE
     Indication: HER2 positive breast cancer
     Dosage: 3.6 MILLIGRAM/KILOGRAM, Q3WK
     Route: 042
     Dates: start: 20190603, end: 20200914
  6. TAXOTERE [Suspect]
     Active Substance: DOCETAXEL
     Indication: HER2 positive breast cancer
     Dosage: 75 MG/M2, ONCE EVERY 3 WK
     Route: 042
     Dates: start: 20160823, end: 20160912
  7. HERCEPTIN [Suspect]
     Active Substance: TRASTUZUMAB
     Indication: HER2 positive breast cancer
     Dosage: 6 MG/KG, ONCE EVERY 3 WK
     Route: 042
     Dates: start: 20160823, end: 20190513
  8. NAVELBINE [Suspect]
     Active Substance: VINORELBINE TARTRATE
     Indication: HER2 positive breast cancer
     Dosage: 30 MG/M2, ONCE EVERY 3 WK
     Route: 042
     Dates: start: 20160913, end: 20170213
  9. NEULASTA [Concomitant]
     Active Substance: PEGFILGRASTIM
     Indication: Product used for unknown indication
     Dosage: 6 MG ONCE
     Route: 058
     Dates: start: 20160824, end: 20160824
  10. SOLU DACORTIN [Concomitant]
     Indication: Product used for unknown indication
     Dosage: 100 MG/ EVERY CYCLE ON DAY 1
     Route: 042
     Dates: start: 20161031, end: 20161212
  11. SOLU DACORTIN [Concomitant]
     Dosage: 100 MILLIGRAM, CYCLICAL/CHECKEDEVERY CYCLE ON DAY 1
     Route: 065
     Dates: start: 20161031
  12. DRONABINOL [Concomitant]
     Active Substance: DRONABINOL
     Indication: Pain
     Dosage: 2.5 MG, QD EVERY CYCLE ON DAY 1
     Route: 048
     Dates: end: 202108
  13. DIPHENHYDRAMINE HYDROCHLORIDE [Concomitant]
     Active Substance: DIPHENHYDRAMINE HYDROCHLORIDE
     Indication: Product used for unknown indication
     Dosage: UNK
     Route: 065
     Dates: start: 20161031
  14. PANTOPRAZOLE SODIUM [Concomitant]
     Active Substance: PANTOPRAZOLE SODIUM
     Indication: Product used for unknown indication
     Dosage: 40 MG, QD
     Route: 048
     Dates: start: 20160809, end: 202109
  15. DEXAMETHASONE SODIUM PHOSPHATE [Concomitant]
     Active Substance: DEXAMETHASONE PHOSPHATE\DEXAMETHASONE SODIUM PHOSPHATE
     Indication: Product used for unknown indication
     Dosage: EVERY CYCLE DAY -1, DAY 1, DAY 2
     Route: 048
     Dates: start: 20160822, end: 20160824
  16. ZOFRAN [Concomitant]
     Active Substance: ONDANSETRON HYDROCHLORIDE
     Indication: Product used for unknown indication
     Dosage: 8 MG
     Route: 048
     Dates: start: 20160823, end: 20170213
  17. NOVALGIN (METAMIZOLE SODIUM) [Concomitant]
     Active Substance: METAMIZOLE SODIUM
     Indication: Arthralgia
     Dosage: UNK
     Route: 065
     Dates: start: 20200714
  18. MIRTAZAPINE [Concomitant]
     Active Substance: MIRTAZAPINE
     Indication: Depression
     Dosage: 15 MG, QD
     Route: 048
     Dates: start: 202108
  19. PREDNISOLONE [Concomitant]
     Active Substance: PREDNISOLONE
     Indication: Metastases to central nervous system
     Dosage: 5 MG, QD
     Route: 048
     Dates: start: 2021
  20. AMDINOCILLIN [Concomitant]
     Active Substance: AMDINOCILLIN
     Indication: Product used for unknown indication
     Dosage: 1 DF
     Route: 048
     Dates: start: 20210809, end: 20210815
  21. SEROQUEL [Concomitant]
     Active Substance: QUETIAPINE FUMARATE
     Indication: Metastases to central nervous system
     Dosage: 25 MG, QD
     Route: 048
     Dates: start: 2021
  22. LAXOGOL [Concomitant]
     Indication: Prophylaxis
     Dosage: 1 DF, QD
     Route: 048
     Dates: start: 2021
  23. DIAZEPAM [Concomitant]
     Active Substance: DIAZEPAM
     Indication: Metastases to central nervous system
     Dosage: 20 DROP (1/12 MILLILITRE
     Route: 048
  24. ENOXAPARIN SODIUM [Concomitant]
     Active Substance: ENOXAPARIN SODIUM
     Indication: Prophylaxis
     Dosage: 4000 U
     Route: 058
     Dates: start: 202108

REACTIONS (1)
  - Arthralgia [Recovered/Resolved with Sequelae]

NARRATIVE: CASE EVENT DATE: 20210807
